FAERS Safety Report 9565740 (Version 1)
Quarter: 2013Q3

REPORT INFORMATION
  Report Type: Report from Study
  Country: US (occurrence: US)
  Receive Date: 20130930
  Receipt Date: 20130930
  Transmission Date: 20140515
  Serious: Yes (Hospitalization)
  Sender: FDA-Public Use
  Company Number: US-GLAXOSMITHKLINE-A1042976A

PATIENT
  Age: 65 Year
  Sex: Male

DRUGS (14)
  1. COREG [Suspect]
  2. RITUXIMAB [Suspect]
     Indication: RHEUMATOID ARTHRITIS
     Route: 042
     Dates: start: 20071003, end: 20081016
  3. ATIVAN [Suspect]
  4. ZOCOR [Suspect]
  5. LASIX [Suspect]
  6. PREDNISONE [Suspect]
  7. LISINOPRIL [Suspect]
  8. LANOXIN [Suspect]
  9. AMIODARONE HYDROCHLORIDE [Suspect]
  10. VICODIN [Suspect]
  11. AMBIEN [Suspect]
  12. NEXIUM [Suspect]
  13. COUMADIN [Suspect]
  14. ASPIRIN [Suspect]

REACTIONS (2)
  - Pneumonia [Recovered/Resolved]
  - Cardiac failure congestive [Unknown]
